FAERS Safety Report 8223180-9 (Version None)
Quarter: 2012Q1

REPORT INFORMATION
  Report Type: 
  Country: None (occurrence: None)
  Receive Date: 20120321
  Receipt Date: 20120220
  Transmission Date: 20120608
  Serious: Yes (Hospitalization)
  Sender: FDA-Public Use
  Company Number: JP-ROCHE-1014756

PATIENT
  Sex: Male
  Weight: 75 kg

DRUGS (7)
  1. ALLEGRA [Concomitant]
     Route: 048
     Dates: start: 20110909
  2. POLARAMINE [Concomitant]
     Route: 048
     Dates: start: 20110902
  3. PREDNISOLONE [Concomitant]
     Dates: start: 20120113, end: 20120127
  4. BI 201335 (HCV PROTEASE INHIBITOR) [Suspect]
     Indication: HEPATITIS C
  5. COPEGUS [Suspect]
     Indication: HEPATITIS C
     Route: 048
     Dates: start: 20110722, end: 20111104
  6. PEGINTERFERON ALFA-2A [Suspect]
     Indication: HEPATITIS C
     Route: 058
     Dates: start: 20110722, end: 20111028
  7. PREDNISOLONE [Concomitant]
     Indication: EOSINOPHILIA
     Route: 048
     Dates: start: 20110930, end: 20120113

REACTIONS (2)
  - HISTIOCYTOSIS HAEMATOPHAGIC [None]
  - PYREXIA [None]
